FAERS Safety Report 18673397 (Version 1)
Quarter: 2020Q4

REPORT INFORMATION
  Report Type: Spontaneous
  Country: US (occurrence: US)
  Receive Date: 20201229
  Receipt Date: 20201229
  Transmission Date: 20210114
  Serious: No
  Sender: FDA-Public Use
  Company Number: US-BAUSCH-BL-2020-038397

PATIENT
  Sex: Female

DRUGS (1)
  1. LACRISERT [Suspect]
     Active Substance: HYDROXYPROPYL CELLULOSE
     Indication: PRODUCT USED FOR UNKNOWN INDICATION
     Route: 065
     Dates: end: 2019

REACTIONS (3)
  - Dry eye [Not Recovered/Not Resolved]
  - Therapy interrupted [Unknown]
  - Product supply issue [Unknown]

NARRATIVE: CASE EVENT DATE: 2019
